FAERS Safety Report 8146040-0 (Version None)
Quarter: 2012Q1

REPORT INFORMATION
  Report Type: 
  Country: None (occurrence: None)
  Receive Date: 20120217
  Receipt Date: 20120214
  Transmission Date: 20120608
  Serious: Yes (Other)
  Sender: FDA-Public Use
  Company Number: US-BAYER-2012-015334

PATIENT

DRUGS (6)
  1. PLAVIX [Suspect]
     Indication: ANTICOAGULANT THERAPY
  2. PLAVIX [Suspect]
     Indication: ANTIPLATELET THERAPY
  3. ASPIRIN [Suspect]
     Indication: ANTIPLATELET THERAPY
  4. LIDOCAINE [Concomitant]
     Indication: LOCAL ANAESTHESIA
     Route: 061
  5. ASPIRIN [Suspect]
     Indication: ANTICOAGULANT THERAPY
  6. BUPIVACAINE HCL [Concomitant]
     Indication: LOCAL ANAESTHESIA
     Route: 057

REACTIONS (1)
  - VITREOUS HAEMORRHAGE [None]
